FAERS Safety Report 6539288-X (Version None)
Quarter: 2010Q1

REPORT INFORMATION
  Report Type: 
  Country: None (occurrence: None)
  Receive Date: 20100115
  Receipt Date: 20100113
  Transmission Date: 20100710
  Serious: Yes (Other)
  Sender: FDA-Public Use
  Company Number: US-ROXANE LABORATORIES, INC.-2010-RO-00026RO

PATIENT
  Age: 10 Year
  Sex: Female

DRUGS (2)
  1. LEVETIRACETAM [Suspect]
     Indication: EPILEPSY
  2. KEPPRA [Suspect]
     Indication: EPILEPSY

REACTIONS (2)
  - COGNITIVE DISORDER [None]
  - STATUS EPILEPTICUS [None]
